FAERS Safety Report 19789900 (Version 1)
Quarter: 2021Q3

REPORT INFORMATION
  Report Type: Spontaneous
  Country: IL (occurrence: IL)
  Receive Date: 20210905
  Receipt Date: 20210905
  Transmission Date: 20211014
  Serious: Yes (Life-Threatening)
  Sender: FDA-Public Use
  Company Number: IL-TEVA-2021-IL-1950129

PATIENT
  Sex: Male

DRUGS (1)
  1. PACLITAXEL TEVA [Suspect]
     Active Substance: PACLITAXEL
     Dosage: 75 / M2
     Dates: start: 20210601

REACTIONS (3)
  - Adverse reaction [Unknown]
  - Dyspnoea [Unknown]
  - Pyrexia [Unknown]
